FAERS Safety Report 7555019-9 (Version None)
Quarter: 2011Q2

REPORT INFORMATION
  Report Type: 
  Country: None (occurrence: None)
  Receive Date: 20110610
  Receipt Date: 20110530
  Transmission Date: 20111010
  Serious: Yes (Death)
  Sender: FDA-Public Use
  Company Number: JP-2011-10808

PATIENT
  Age: 36 Year
  Sex: Male
  Weight: 64 kg

DRUGS (14)
  1. SEISHOKU (ISOTONIC SODIUM) INJECTION [Concomitant]
  2. ALDACTONE A (SPIRONOLACTONE) TABLE [Concomitant]
  3. ALLOPURINOL [Concomitant]
  4. DOPAMINE (DOPAMINE HYDROCHLORIDE) INJECTION [Concomitant]
  5. SAMSCA [Suspect]
     Indication: CARDIAC FAILURE
     Dosage: 7.5 MG MILLIGRAM(S), QD, ORAL
     Route: 048
     Dates: start: 20110322, end: 20110323
  6. RENIVACE (ENALAPRIL MALEATE) TAB [Concomitant]
  7. WARFARIN (WARFARIN SODIUM) TABLET [Concomitant]
  8. FAMOTIDINE [Concomitant]
  9. VEEN-F (ACETATED RINGER) INJECTION [Concomitant]
  10. CARVEDILOL [Concomitant]
  11. MAGMITT (MAGNESIUM OXIDE) TABLET [Concomitant]
  12. DOBUTAMINE (DOBUTAMINE HYDROCHLORIDE) INJECTION [Concomitant]
  13. DIGOXIN [Concomitant]
  14. LASIX [Concomitant]

REACTIONS (2)
  - CARDIAC FAILURE [None]
  - URINE OUTPUT DECREASED [None]
